FAERS Safety Report 7284947-7 (Version None)
Quarter: 2011Q1

REPORT INFORMATION
  Report Type: 
  Country: None (occurrence: None)
  Receive Date: 20110210
  Receipt Date: 20101217
  Transmission Date: 20110831
  Serious: Yes (Hospitalization)
  Sender: FDA-Public Use
  Company Number: US-BAYER-200943359NA

PATIENT
  Sex: Female
  Weight: 113.38 kg

DRUGS (4)
  1. ASPIRIN [Concomitant]
  2. GLUCOVANCE [Concomitant]
  3. GLUCOPHAGE [Concomitant]
  4. YASMIN [Suspect]
     Indication: CONTRACEPTION
     Dates: start: 20060501, end: 20091101

REACTIONS (6)
  - VOMITING [None]
  - NAUSEA [None]
  - GASTROOESOPHAGEAL REFLUX DISEASE [None]
  - CHOLECYSTITIS CHRONIC [None]
  - CHEST PAIN [None]
  - CHOLELITHIASIS [None]
